FAERS Safety Report 8289928-2 (Version None)
Quarter: 2012Q2

REPORT INFORMATION
  Report Type: 
  Country: None (occurrence: None)
  Receive Date: 20120417
  Receipt Date: 20120409
  Transmission Date: 20120825
  Serious: Yes (Hospitalization)
  Sender: FDA-Public Use
  Company Number: US-US-EMD SERONO, INC.-7125316

PATIENT
  Sex: Male

DRUGS (6)
  1. ATIVAN [Concomitant]
     Indication: ANXIETY
  2. SEROQUEL [Concomitant]
     Indication: PRODUCT USED FOR UNKNOWN INDICATION
  3. BACLOFEN [Concomitant]
     Indication: MUSCLE SPASTICITY
  4. REQUIP [Concomitant]
     Indication: RESTLESS LEGS SYNDROME
  5. REBIF [Suspect]
     Indication: MULTIPLE SCLEROSIS
     Route: 058
     Dates: start: 20040915
  6. FLEXERIL [Concomitant]
     Indication: MUSCLE SPASMS

REACTIONS (2)
  - PNEUMONIA [None]
  - CONSTIPATION [None]
